FAERS Safety Report 12178394 (Version 1)
Quarter: 2016Q1

REPORT INFORMATION
  Report Type: Spontaneous
  Country: None (occurrence: None)
  Receive Date: 20160314
  Receipt Date: 20160314
  Transmission Date: 20160526
  Serious: No
  Sender: FDA-Public Use
  Company Number: None

PATIENT
  Age: 52 Year
  Sex: Female
  Weight: 58.97 kg

DRUGS (2)
  1. TAMIFLU [Suspect]
     Active Substance: OSELTAMIVIR PHOSPHATE
     Indication: INFLUENZA
     Dosage: 1 CAPSULE
     Route: 048
  2. ADVIL [Concomitant]
     Active Substance: IBUPROFEN

REACTIONS (2)
  - Nightmare [None]
  - Hallucination [None]

NARRATIVE: CASE EVENT DATE: 20160311
